FAERS Safety Report 21178084 (Version 2)
Quarter: 2022Q3

REPORT INFORMATION
  Report Type: Spontaneous
  Country: CN (occurrence: CN)
  Receive Date: 20220805
  Receipt Date: 20220824
  Transmission Date: 20221026
  Serious: No
  Sender: FDA-Public Use
  Company Number: CN-HORIZON THERAPEUTICS-HZN-2022-005516

PATIENT

DRUGS (4)
  1. RAVICTI [Suspect]
     Active Substance: GLYCEROL PHENYLBUTYRATE
     Indication: Hyperammonaemia
     Dosage: 1.5 ML, TID
     Route: 048
     Dates: start: 20220613
  2. ORNITHINE ASPARTATE [Suspect]
     Active Substance: ORNITHINE ASPARTATE
     Indication: Symptomatic treatment
     Route: 065
  3. GLUCUROLACTONE [Concomitant]
     Active Substance: GLUCUROLACTONE
     Dosage: UNK
     Route: 048
     Dates: start: 20220530
  4. ARGININE [Concomitant]
     Active Substance: ARGININE
     Dosage: UNK
     Route: 048
     Dates: start: 20220530

REACTIONS (4)
  - Decreased appetite [Recovered/Resolved]
  - Skin odour abnormal [Recovered/Resolved]
  - Fatigue [Unknown]
  - Feeling abnormal [Unknown]

NARRATIVE: CASE EVENT DATE: 20220617
